FAERS Safety Report 15139478 (Version 1)
Quarter: 2018Q3

REPORT INFORMATION
  Report Type: Spontaneous
  Country: US (occurrence: US)
  Receive Date: 20180713
  Receipt Date: 20180713
  Transmission Date: 20181010
  Serious: Yes (Other)
  Sender: FDA-Public Use
  Company Number: US-JNJFOC-20180705458

PATIENT
  Age: 36 Year
  Sex: Female
  Weight: 78.47 kg

DRUGS (4)
  1. OFLOXACIN. [Concomitant]
     Active Substance: OFLOXACIN
     Indication: PRODUCT USED FOR UNKNOWN INDICATION
     Route: 047
  2. GABENTIN [Concomitant]
     Active Substance: GABAPENTIN
     Indication: EPILEPSY
     Route: 065
  3. TEGRETOL [Concomitant]
     Active Substance: CARBAMAZEPINE
     Indication: EPILEPSY
     Route: 065
  4. NEUTROGENA WET SKIN KIDS BEACH AND POOL SUNBLOCK SPF 70 [Suspect]
     Active Substance: AVOBENZONE\HOMOSALATE\OCTISALATE\OCTOCRYLENE\OXYBENZONE
     Indication: PROPHYLAXIS
     Dosage: TWO OR THREE SPRAYS THROUGH OUT DAY FOR ONE DAY
     Route: 061
     Dates: start: 20180630, end: 20180630

REACTIONS (5)
  - Sunburn [Recovering/Resolving]
  - Application site burn [Recovering/Resolving]
  - Product quality issue [Unknown]
  - Chemical burns of eye [Recovering/Resolving]
  - Paradoxical drug reaction [None]

NARRATIVE: CASE EVENT DATE: 20180630
